FAERS Safety Report 10998686 (Version 2)
Quarter: 2015Q2

REPORT INFORMATION
  Report Type: Spontaneous
  Country: IT (occurrence: IT)
  Receive Date: 20150408
  Receipt Date: 20150408
  Transmission Date: 20150821
  Serious: Yes (Hospitalization)
  Sender: FDA-Public Use
  Company Number: IT-ACTAVIS-2015-07251

PATIENT
  Age: 38 Year
  Sex: Male

DRUGS (6)
  1. DICLOFENAC (UNKNOWN) [Suspect]
     Active Substance: DICLOFENAC SODIUM
     Indication: ARTHRITIS
     Dosage: 50 MG, DAILY
     Route: 048
     Dates: start: 20150314, end: 20150317
  2. OMEPRAZOLE (UNKNOWN) [Suspect]
     Active Substance: OMEPRAZOLE
     Indication: PRODUCT USED FOR UNKNOWN INDICATION
     Dosage: 20 MG, DAILY
     Route: 048
     Dates: start: 20150314, end: 20150317
  3. MUSCORIL [Suspect]
     Active Substance: THIOCOLCHICOSIDE
     Indication: ARTHRITIS
     Dosage: 4 MG, DAILY
     Route: 048
     Dates: start: 20150314, end: 20150317
  4. AMOXICILLIN-CLAVULANIC ACID (UNKNOWN) [Suspect]
     Active Substance: AMOXICILLIN\CLAVULANIC ACID
     Indication: PNEUMONITIS
     Dosage: 3 G, DAILY
     Route: 048
     Dates: start: 20150314, end: 20150317
  5. ACETAMINOPHEN AND CODEINE [Suspect]
     Active Substance: ACETAMINOPHEN\CODEINE PHOSPHATE
     Indication: PRODUCT USED FOR UNKNOWN INDICATION
     Dosage: 500 MG, PRN
     Route: 048
  6. PREDNISONE. [Concomitant]
     Active Substance: PREDNISONE
     Indication: PRODUCT USED FOR UNKNOWN INDICATION
     Dosage: UNKNOWN

REACTIONS (3)
  - Urticaria [Recovering/Resolving]
  - Oedema mouth [Recovering/Resolving]
  - Pruritus [Recovering/Resolving]

NARRATIVE: CASE EVENT DATE: 20150317
